FAERS Safety Report 17500022 (Version 8)
Quarter: 2022Q2

REPORT INFORMATION
  Report Type: Other
  Country: US (occurrence: None)
  Receive Date: 20200304
  Receipt Date: 20220617
  Transmission Date: 20220721
  Serious: Yes (Hospitalization, Other)
  Sender: FDA-Public Use
  Company Number: US-ROCHE-2556654

PATIENT
  Sex: Male
  Weight: 118.04 kg

DRUGS (23)
  1. OCREVUS [Suspect]
     Active Substance: OCRELIZUMAB
     Indication: Primary progressive multiple sclerosis
     Dosage: SUBSEQUENT: 600 MG EVERY 6 MONTHS
     Route: 042
     Dates: start: 201709
  2. OCREVUS [Suspect]
     Active Substance: OCRELIZUMAB
     Dosage: DATE OF TREATMENT: 07/SEP/2018, /OCT/2019: 09/MAR/2018?DOSE 30MG/ML, INFUSE 20 ML IV ONCE EVERY 6 MO
     Route: 042
  3. OCREVUS [Suspect]
     Active Substance: OCRELIZUMAB
     Route: 042
     Dates: start: 20200522
  4. VALIUM [Suspect]
     Active Substance: DIAZEPAM
     Indication: Muscle spasms
     Dosage: ONE AT NIGHT AS NEEDED
     Route: 048
     Dates: start: 20190827
  5. VALIUM [Suspect]
     Active Substance: DIAZEPAM
     Route: 048
     Dates: start: 2020, end: 202004
  6. VALIUM [Suspect]
     Active Substance: DIAZEPAM
     Route: 048
     Dates: start: 202004
  7. VALIUM [Suspect]
     Active Substance: DIAZEPAM
     Dosage: TAKES IN THE MORNING AND THE AFTERNOON
     Route: 048
  8. VALIUM [Suspect]
     Active Substance: DIAZEPAM
     Dosage: STARTED 1 TO 1.5 YEARS AGO TAKES AT BEDTIME
     Route: 048
  9. LOSARTAN POTASSIUM [Concomitant]
     Active Substance: LOSARTAN POTASSIUM
     Indication: Hypertension
     Dosage: THREE TABLETS ONCE A DAY
     Route: 048
     Dates: start: 2019
  10. AMLODIPINE BESYLATE [Concomitant]
     Active Substance: AMLODIPINE BESYLATE
     Indication: Hypertension
     Route: 048
  11. GABAPENTIN [Concomitant]
     Active Substance: GABAPENTIN
     Indication: Pain
     Dosage: 2 CAPSULES EVERY EIGHT HOURS
     Route: 048
  12. GABAPENTIN [Concomitant]
     Active Substance: GABAPENTIN
     Indication: Back pain
  13. GABAPENTIN [Concomitant]
     Active Substance: GABAPENTIN
     Indication: Pain
  14. TIZANIDINE [Concomitant]
     Active Substance: TIZANIDINE
     Indication: Muscle spasms
     Route: 048
     Dates: start: 2019
  15. TOPIRAMATE [Concomitant]
     Active Substance: TOPIRAMATE
     Route: 048
     Dates: start: 201910
  16. TRILEPTAL [Concomitant]
     Active Substance: OXCARBAZEPINE
     Route: 048
  17. SERTRALINE [Concomitant]
     Active Substance: SERTRALINE HYDROCHLORIDE
     Indication: Depression
     Route: 048
     Dates: start: 2012
  18. TOPAMAX [Concomitant]
     Active Substance: TOPIRAMATE
     Indication: Spondylitis
     Route: 048
     Dates: start: 2019
  19. AMLODIPINE [Concomitant]
     Active Substance: AMLODIPINE BESYLATE
     Indication: Hypertension
     Route: 048
  20. LOSARTAN [Concomitant]
     Active Substance: LOSARTAN
     Indication: Hypertension
     Route: 048
  21. ASPIRIN [Concomitant]
     Active Substance: ASPIRIN
     Route: 048
  22. ACETAMINOPHEN\HYDROCODONE [Concomitant]
     Active Substance: ACETAMINOPHEN\HYDROCODONE
     Indication: Pain
     Dosage: 325 MG ACETAMINOPHEN
     Route: 048
  23. METHENAMINE [Concomitant]
     Active Substance: METHENAMINE
     Indication: Urinary tract infection
     Route: 048

REACTIONS (23)
  - Wound infection [Not Recovered/Not Resolved]
  - Urinary tract infection [Recovered/Resolved]
  - Intervertebral disc degeneration [Not Recovered/Not Resolved]
  - Muscle spasms [Recovering/Resolving]
  - Bladder spasm [Unknown]
  - Vitamin D deficiency [Not Recovered/Not Resolved]
  - Impaired healing [Recovering/Resolving]
  - Muscular weakness [Not Recovered/Not Resolved]
  - Pain in extremity [Not Recovered/Not Resolved]
  - Infection [Recovering/Resolving]
  - Wound complication [Recovering/Resolving]
  - Abdominal abscess [Recovered/Resolved]
  - Bladder perforation [Recovered/Resolved]
  - Erythema [Not Recovered/Not Resolved]
  - Poor peripheral circulation [Not Recovered/Not Resolved]
  - Urinary incontinence [Not Recovered/Not Resolved]
  - Dupuytren^s contracture [Not Recovered/Not Resolved]
  - Incontinence [Not Recovered/Not Resolved]
  - Hypertonic bladder [Not Recovered/Not Resolved]
  - Fall [Unknown]
  - Skin irritation [Recovering/Resolving]
  - Skin ulcer [Unknown]
  - Osteomyelitis [Not Recovered/Not Resolved]

NARRATIVE: CASE EVENT DATE: 20180101
